FAERS Safety Report 9561085 (Version 1)
Quarter: 2013Q3

REPORT INFORMATION
  Report Type: Spontaneous
  Country: GB (occurrence: None)
  Receive Date: 20130925
  Receipt Date: 20130925
  Transmission Date: 20140515
  Serious: Yes (Hospitalization)
  Sender: FDA-Public Use
  Company Number: 1910145

PATIENT
  Age: 36 Year
  Sex: Male

DRUGS (6)
  1. CARBOPLATIN [Suspect]
     Indication: EXTRAGONADAL PRIMARY GERM CELL TUMOUR
     Dosage: NOT REPORTED, CYCLICAL, UNKNOWN
  2. CARBOPLATIN [Suspect]
     Dosage: NOT REPORTED, CYCLICAL, UNKNOWN
  3. CISPLATIN [Suspect]
     Indication: EXTRAGONADAL PRIMARY GERM CELL TUMOUR
     Dosage: 100 MG/M2 MILLIGRAM(S)/SQ. METER, (CYCLICAL)
  4. ETOPOSIDE [Suspect]
     Indication: EXTRAGONADAL PRIMARY GERM CELL TUMOUR
     Dosage: NOT REPORTED, CYCLICAL, UNKNOWN
  5. HEPARIN (LMW) [Concomitant]
  6. (WARFARIN) [Concomitant]

REACTIONS (6)
  - Encephalopathy [None]
  - Endocarditis bacterial [None]
  - Loss of consciousness [None]
  - Acute hepatic failure [None]
  - Hepatic necrosis [None]
  - Atrioventricular block complete [None]
